FAERS Safety Report 15640689 (Version 2)
Quarter: 2018Q4

REPORT INFORMATION
  Report Type: Report from Study
  Country: US (occurrence: US)
  Receive Date: 20181120
  Receipt Date: 20181221
  Transmission Date: 20190205
  Serious: Yes (Other)
  Sender: FDA-Public Use
  Company Number: US-GILEAD-2018-0375365

PATIENT
  Age: 71 Year
  Sex: Female

DRUGS (2)
  1. OXYGEN. [Concomitant]
     Active Substance: OXYGEN
  2. AMBRISENTAN [Suspect]
     Active Substance: AMBRISENTAN
     Indication: COR PULMONALE
     Dosage: 5 MG, QD
     Route: 065
     Dates: start: 20160119

REACTIONS (4)
  - Localised infection [Unknown]
  - Dyspnoea [Recovered/Resolved]
  - Scleroderma [Unknown]
  - Fungal infection [Not Recovered/Not Resolved]

NARRATIVE: CASE EVENT DATE: 201810
